FAERS Safety Report 6828048-8 (Version None)
Quarter: 2010Q3

REPORT INFORMATION
  Report Type: 
  Country: None (occurrence: None)
  Receive Date: 20100709
  Receipt Date: 20100705
  Transmission Date: 20110219
  Serious: Yes (Life-Threatening, Hospitalization)
  Sender: FDA-Public Use
  Company Number: B0661774A

PATIENT
  Sex: Male
  Weight: 88 kg

DRUGS (8)
  1. ARIXTRA [Suspect]
     Indication: THROMBOSIS PROPHYLAXIS
     Dosage: 2.5MG PER DAY
     Route: 058
     Dates: start: 20100417, end: 20100421
  2. PLAVIX [Suspect]
     Indication: PRODUCT USED FOR UNKNOWN INDICATION
     Dosage: 75MG PER DAY
     Route: 048
     Dates: end: 20100421
  3. TAHOR [Concomitant]
     Route: 048
  4. AMLOR [Concomitant]
     Route: 048
  5. ATENOLOL [Concomitant]
     Route: 065
  6. KALEORID [Concomitant]
     Route: 048
  7. LASIX [Concomitant]
     Route: 048
  8. AMYCOR [Concomitant]
     Route: 065

REACTIONS (6)
  - ANAEMIA [None]
  - CARDIO-RESPIRATORY ARREST [None]
  - HAEMATOMA [None]
  - PAIN IN EXTREMITY [None]
  - PROTHROMBIN LEVEL DECREASED [None]
  - SHOCK HAEMORRHAGIC [None]
